FAERS Safety Report 5164190-8 (Version None)
Quarter: 2006Q4

REPORT INFORMATION
  Report Type: 
  Country: None (occurrence: None)
  Receive Date: 20060918
  Receipt Date: 20060110
  Transmission Date: 20070319
  Serious: Yes (Other)
  Sender: FDA-Public Use
  Company Number: US-JNJFOC-20050806782

PATIENT
  Age: 53 Year
  Sex: Female

DRUGS (6)
  1. TOPAMAX [Suspect]
     Indication: DRUG THERAPY
     Dosage: 400 MG, 1 IN 1 DAY
     Dates: start: 20020101
  2. GEODON [Concomitant]
  3. PROVIGIL [Concomitant]
  4. RITALIN [Concomitant]
  5. STRATTERA (ALL OTHER THERAPEUTIC PRODUCTS) [Concomitant]
  6. CYMBALTA [Concomitant]

REACTIONS (3)
  - EYE PAIN [None]
  - SUICIDAL IDEATION [None]
  - VISION BLURRED [None]
